FAERS Safety Report 20079662 (Version 3)
Quarter: 2022Q1

REPORT INFORMATION
  Report Type: Spontaneous
  Country: US (occurrence: US)
  Receive Date: 20211117
  Receipt Date: 20220128
  Transmission Date: 20220423
  Serious: Yes (Other)
  Sender: FDA-Public Use
  Company Number: US-GSKCCFUS-Case-01217254_AE-71317

PATIENT
  Age: 75 Year
  Sex: Female

DRUGS (1)
  1. TRELEGY ELLIPTA [Suspect]
     Active Substance: FLUTICASONE FUROATE\UMECLIDINIUM BROMIDE\VILANTEROL TRIFENATATE
     Indication: Product used for unknown indication
     Dosage: 1 PUFF(S), QD 100/62.5/25MCG
     Route: 055

REACTIONS (4)
  - Cerebrovascular accident [Recovered/Resolved with Sequelae]
  - Blindness unilateral [Unknown]
  - Device use error [Unknown]
  - Product complaint [Unknown]

NARRATIVE: CASE EVENT DATE: 20211001
